FAERS Safety Report 16197674 (Version 1)
Quarter: 2019Q2

REPORT INFORMATION
  Report Type: Spontaneous
  Country: US (occurrence: US)
  Receive Date: 20190414
  Receipt Date: 20190414
  Transmission Date: 20190711
  Serious: Yes (Hospitalization)
  Sender: FDA-Public Use
  Company Number: None

PATIENT
  Age: 60 Year
  Sex: Female

DRUGS (11)
  1. OXYCODONE/APAP 10/325MG [Concomitant]
     Active Substance: ACETAMINOPHEN\OXYCODONE HYDROCHLORIDE
     Dates: start: 20190402
  2. METOPROLOL TARTRATE 25 MG [Concomitant]
     Active Substance: METOPROLOL TARTRATE
     Dates: start: 20181210
  3. CYCLOBENZAPRINE 10 MG [Concomitant]
     Active Substance: CYCLOBENZAPRINE
     Dates: start: 20190312
  4. ARAVA 20 MG [Concomitant]
     Dates: start: 20170320
  5. DULOXETINE 60MG [Concomitant]
     Active Substance: DULOXETINE
     Dates: start: 20180724
  6. LEFLUNOMIDE 20MG [Concomitant]
     Active Substance: LEFLUNOMIDE
     Dates: start: 20190102
  7. XELJANZ [Suspect]
     Active Substance: TOFACITINIB CITRATE
     Indication: RHEUMATOID ARTHRITIS
     Route: 048
     Dates: start: 20171215
  8. SIMVASTATIN 10MG [Concomitant]
     Active Substance: SIMVASTATIN
     Dates: start: 20190218
  9. FLITICASONE 50 MCG [Concomitant]
     Dates: start: 20181108
  10. ATORVASTATIN 10 MG [Concomitant]
     Active Substance: ATORVASTATIN
     Dates: start: 20190214
  11. VITAMIN D NOS [Concomitant]
     Active Substance: VITAMIN D NOS
     Dates: start: 20181205

REACTIONS (2)
  - Thyroid disorder [None]
  - Dyspnoea [None]

NARRATIVE: CASE EVENT DATE: 20190325
